FAERS Safety Report 15786889 (Version 1)
Quarter: 2019Q1

REPORT INFORMATION
  Report Type: Report from Study
  Country: ES (occurrence: ES)
  Receive Date: 20190103
  Receipt Date: 20190103
  Transmission Date: 20190417
  Serious: Yes (Other)
  Sender: FDA-Public Use
  Company Number: ES-MYLANLABS-2018M1097398

PATIENT
  Age: 82 Year
  Sex: Male

DRUGS (4)
  1. DEPRAX                             /00447702/ [Concomitant]
     Active Substance: TRAZODONE HYDROCHLORIDE
     Indication: INSOMNIA
     Dosage: 100 MILLIGRAM, BID
     Route: 048
     Dates: start: 20171020
  2. REMINYL [Concomitant]
     Active Substance: GALANTAMINE
     Indication: COGNITIVE DISORDER
     Dosage: UNK
     Route: 048
     Dates: start: 20171220, end: 20180108
  3. QUETIAPINE. [Suspect]
     Active Substance: QUETIAPINE
     Indication: COGNITIVE DISORDER
     Dosage: 25 MILLIGRAM, Q6H
     Route: 048
     Dates: start: 20171220, end: 20180105
  4. ESCITALOPRAM [Concomitant]
     Active Substance: ESCITALOPRAM OXALATE
     Dosage: 10 MILLIGRAM, QD
     Route: 048
     Dates: start: 20171020

REACTIONS (2)
  - Somnolence [Recovered/Resolved]
  - Depressed level of consciousness [Not Recovered/Not Resolved]

NARRATIVE: CASE EVENT DATE: 20171220
